FAERS Safety Report 6903977-5 (Version None)
Quarter: 2010Q3

REPORT INFORMATION
  Report Type: 
  Country: None (occurrence: None)
  Receive Date: 20100804
  Receipt Date: 20100722
  Transmission Date: 20110219
  Serious: Yes (Hospitalization)
  Sender: FDA-Public Use
  Company Number: US-RANBAXY-2010US-36278

PATIENT

DRUGS (1)
  1. CALAN [Suspect]
     Indication: PRODUCT USED FOR UNKNOWN INDICATION
     Dosage: 240 MG, BID
     Route: 065
     Dates: start: 20090608

REACTIONS (5)
  - FACE INJURY [None]
  - FALL [None]
  - LABYRINTHITIS [None]
  - MALAISE [None]
  - VERTIGO [None]
